FAERS Safety Report 5635705-8 (Version None)
Quarter: 2008Q1

REPORT INFORMATION
  Report Type: 
  Country: None (occurrence: None)
  Receive Date: 20080220
  Receipt Date: 20080205
  Transmission Date: 20080703
  Serious: Yes (Hospitalization, Disabling)
  Sender: FDA-Public Use
  Company Number: GXKR2008GB01055

PATIENT
  Age: 76 Year
  Sex: Female

DRUGS (9)
  1. SIMVASTATIN [Suspect]
     Indication: CARDIAC DISORDER
     Dosage: 40 MG, QD, ORAL
     Route: 048
     Dates: end: 20071018
  2. FUSIDIC ACID [Suspect]
     Indication: ARTHRITIS BACTERIAL
     Dosage: 500 MG, TID, ORAL
     Route: 048
     Dates: start: 20070914, end: 20071022
  3. ACETYLSALICYLIC ACID SRT [Concomitant]
  4. CLINDAMYCIN (CLINDAMYCIN) [Concomitant]
  5. CODEINE PHOSPHATE AND ACETAMINOPHEN [Concomitant]
  6. DOXAZOSIN MESYLATE [Concomitant]
  7. FOLIC ACID [Concomitant]
  8. METHOTREXATE [Concomitant]
  9. RAMIPRIL [Concomitant]

REACTIONS (5)
  - BLOOD CREATINE PHOSPHOKINASE INCREASED [None]
  - DRUG INTERACTION [None]
  - LIVER FUNCTION TEST ABNORMAL [None]
  - MUSCULAR WEAKNESS [None]
  - MYOPATHY [None]
